FAERS Safety Report 24738403 (Version 3)
Quarter: 2025Q1

REPORT INFORMATION
  Report Type: Spontaneous
  Country: US (occurrence: US)
  Receive Date: 20241216
  Receipt Date: 20250124
  Transmission Date: 20250408
  Serious: Yes (Hospitalization, Other)
  Sender: PFIZER
  Company Number: US-PFIZER INC-202400322232

PATIENT
  Age: 72 Year
  Sex: Female
  Weight: 83.265 kg

DRUGS (12)
  1. IBRANCE [Suspect]
     Active Substance: PALBOCICLIB
     Indication: Breast cancer female
     Route: 048
  2. IBRANCE [Suspect]
     Active Substance: PALBOCICLIB
     Dosage: 75 MG, QD (DAYS 1-21 OF 28DAY CYCLE)
     Route: 048
     Dates: start: 20230309
  3. LETROZOLE [Suspect]
     Active Substance: LETROZOLE
     Indication: Breast cancer metastatic
     Route: 065
  4. ZOMETA [Suspect]
     Active Substance: ZOLEDRONIC ACID
     Route: 065
  5. VITAMIN D NOS [Concomitant]
     Active Substance: CHOLECALCIFEROL\ERGOCALCIFEROL
  6. ERGOCALCIFEROL [Concomitant]
     Active Substance: ERGOCALCIFEROL
  7. ERGOCALCIFEROL [Concomitant]
     Active Substance: ERGOCALCIFEROL
  8. ERGOCALCIFEROL [Concomitant]
     Active Substance: ERGOCALCIFEROL
  9. CHOLECALCIFEROL [Concomitant]
     Active Substance: CHOLECALCIFEROL
  10. CHOLECALCIFEROL [Concomitant]
     Active Substance: CHOLECALCIFEROL
  11. CHOLECALCIFEROL [Concomitant]
     Active Substance: CHOLECALCIFEROL
  12. CHOLECALCIFEROL [Concomitant]
     Active Substance: CHOLECALCIFEROL

REACTIONS (22)
  - Diverticulitis [Unknown]
  - Gastrointestinal haemorrhage [Unknown]
  - Pneumonia [Unknown]
  - Blood disorder [Unknown]
  - Asthenia [Unknown]
  - Pancytopenia [Unknown]
  - Myocardial necrosis marker increased [Unknown]
  - Pleural effusion [Unknown]
  - Neoplasm progression [Unknown]
  - Illness [Unknown]
  - Nausea [Unknown]
  - Vomiting [Unknown]
  - Diarrhoea [Unknown]
  - White blood cell disorder [Unknown]
  - Platelet disorder [Unknown]
  - Hypercalcaemia [Unknown]
  - Blood calcium abnormal [Unknown]
  - Blood creatinine abnormal [Unknown]
  - Glomerular filtration rate increased [Unknown]
  - Fatigue [Unknown]
  - Malaise [Unknown]
  - Gastrointestinal disorder [Unknown]

NARRATIVE: CASE EVENT DATE: 20221201
